FAERS Safety Report 8986767 (Version 1)
Quarter: 2012Q4

REPORT INFORMATION
  Report Type: Spontaneous
  Country: US (occurrence: None)
  Receive Date: 20121219
  Receipt Date: 20121219
  Transmission Date: 20130627
  Serious: No
  Sender: FDA-Public Use
  Company Number: None

PATIENT

DRUGS (2)
  1. MIDAZOLAM [Suspect]
     Dosage: 2 mg/2mL (1mg/mL)
  2. FUROSEMIDE [Suspect]
     Dosage: 20mg (10mg/mL)

REACTIONS (7)
  - Circumstance or information capable of leading to medication error [None]
  - Product shape issue [None]
  - Device colour issue [None]
  - Product colour issue [None]
  - Product name confusion [None]
  - Intercepted drug dispensing error [None]
  - Wrong drug administered [None]
